FAERS Safety Report 4888035-6 (Version None)
Quarter: 2006Q1

REPORT INFORMATION
  Report Type: 
  Country: None (occurrence: None)
  Receive Date: 20060123
  Receipt Date: 20051005
  Transmission Date: 20060701
  Serious: Yes (Hospitalization)
  Sender: FDA-Public Use
  Company Number: US-MERCK-0510USA04821

PATIENT
  Age: 42 Year
  Sex: Female
  Weight: 80 kg

DRUGS (2)
  1. VIOXX [Suspect]
     Indication: ARTHRALGIA
     Route: 048
     Dates: start: 20030101, end: 20040901
  2. [THERAPY UNSPECIFIED] [Concomitant]
     Route: 065

REACTIONS (9)
  - ADVERSE EVENT [None]
  - CARDIAC DISORDER [None]
  - CARDIAC FLUTTER [None]
  - CARDIOVASCULAR DISORDER [None]
  - CARDIOVASCULAR INSUFFICIENCY [None]
  - CHEST PAIN [None]
  - GASTROINTESTINAL DISORDER [None]
  - SKIN DISORDER [None]
  - ULCER [None]
